FAERS Safety Report 24167104 (Version 3)
Quarter: 2025Q1

REPORT INFORMATION
  Report Type: Spontaneous
  Country: IE (occurrence: IE)
  Receive Date: 20240802
  Receipt Date: 20250228
  Transmission Date: 20250408
  Serious: Yes (Hospitalization, Disabling, Other)
  Sender: PFIZER
  Company Number: IE-MLMSERVICE-20240722-PI138854-00336-1

PATIENT
  Age: 63 Year
  Sex: Female

DRUGS (7)
  1. ZOLEDRONIC ACID [Suspect]
     Active Substance: ZOLEDRONIC ACID
     Dosage: 4 MG EVERY 4 WEEKS (ADJUVANT THERAPY WITH HIGH DOSE)
  2. ZOLEDRONIC ACID [Suspect]
     Active Substance: ZOLEDRONIC ACID
     Dosage: 4 MG EVERY 3 MONTHS
  3. ZOLEDRONIC ACID [Suspect]
     Active Substance: ZOLEDRONIC ACID
  4. ESCITALOPRAM [Concomitant]
     Active Substance: ESCITALOPRAM OXALATE
     Indication: Anxiety
  5. ESCITALOPRAM [Concomitant]
     Active Substance: ESCITALOPRAM OXALATE
     Indication: Depression
  6. LOSARTAN [Concomitant]
     Active Substance: LOSARTAN
     Indication: Hypertension
  7. LETROZOLE [Concomitant]
     Active Substance: LETROZOLE
     Indication: Hormone therapy

REACTIONS (2)
  - Atypical fracture [Recovered/Resolved]
  - Haematoma [Unknown]
